FAERS Safety Report 6758548-0 (Version None)
Quarter: 2010Q2

REPORT INFORMATION
  Report Type: 
  Country: None (occurrence: None)
  Receive Date: 20100607
  Receipt Date: 20100601
  Transmission Date: 20101027
  Serious: Yes (Other)
  Sender: FDA-Public Use
  Company Number: US-ROCHE-698872

PATIENT
  Sex: Female
  Weight: 59.9 kg

DRUGS (2)
  1. CAPECITABINE [Suspect]
     Indication: COLORECTAL CANCER
     Dosage: DOSE; 4 OF 500 MG (AM AND PM)
     Route: 048
     Dates: start: 20090726, end: 20100413
  2. CAPECITABINE [Suspect]
     Dosage: TAKEN IN THE MORNING AND EVENING
     Route: 048
     Dates: end: 20100601

REACTIONS (3)
  - CHEST DISCOMFORT [None]
  - DYSPNOEA [None]
  - PULMONARY OEDEMA [None]
